FAERS Safety Report 6934209-X (Version None)
Quarter: 2010Q3

REPORT INFORMATION
  Report Type: 
  Country: None (occurrence: None)
  Receive Date: 20100820
  Receipt Date: 20100812
  Transmission Date: 20110219
  Serious: Yes (Hospitalization)
  Sender: FDA-Public Use
  Company Number: B0670766A

PATIENT
  Sex: Female
  Weight: 89 kg

DRUGS (2)
  1. ALLI [Suspect]
     Route: 065
     Dates: start: 20100518
  2. SINGULAIR [Concomitant]
     Indication: ASTHMA

REACTIONS (3)
  - ASTHMA [None]
  - BRONCHOSPASM [None]
  - DYSPNOEA [None]
